FAERS Safety Report 6939965-2 (Version None)
Quarter: 2010Q3

REPORT INFORMATION
  Report Type: 
  Country: None (occurrence: None)
  Receive Date: 20100825
  Receipt Date: 20100813
  Transmission Date: 20110219
  Serious: Yes (Other)
  Sender: FDA-Public Use
  Company Number: BR-PFIZER INC-2008031799

PATIENT
  Age: 66 Year
  Sex: Female
  Weight: 62 kg

DRUGS (16)
  1. CHAMPIX [Suspect]
     Indication: SMOKING CESSATION THERAPY
     Dosage: 1 MG, 2X/DAY
     Route: 048
     Dates: start: 20071101, end: 20080101
  2. CHAMPIX [Suspect]
     Dosage: UNK
     Route: 048
     Dates: start: 20100812
  3. BUPROPION [Suspect]
     Dosage: 150 MG, 1X/DAY
     Dates: end: 20100810
  4. RIVOTRIL [Concomitant]
     Indication: ANXIETY
     Dosage: 0.5 MG, UNK
  5. ALPRAZOLAM [Concomitant]
     Indication: ANXIETY
     Dosage: 0.5 MG, 2X/DAY
  6. EQUILID [Concomitant]
  7. LEXOTAN [Concomitant]
     Indication: MUSCLE RELAXANT THERAPY
  8. LEXOTAN [Concomitant]
     Indication: ANXIETY
  9. ENALAPRIL [Concomitant]
     Indication: HYPERTENSION
     Dosage: 0.5 MG, 1X/DAY
  10. OMEPRAZOLE [Concomitant]
     Indication: GASTRITIS
     Dosage: 20 MG, 1X/DAY
  11. FORMOTEROL W/BUDESONIDE [Concomitant]
     Dosage: [FORMOTEROL FUMARATE 12MG]/[BUDESONIDE 400MG]
  12. PREDNISOLONE [Concomitant]
     Dosage: 20 ML, 1X/DAY
  13. DUOVENT [Concomitant]
  14. PURAN T4 [Concomitant]
     Indication: HYPOTHYROIDISM
     Dosage: UNK
     Dates: start: 20100801
  15. PAROXETINE HYDROCHLORIDE [Concomitant]
     Dosage: 15 MG, 1X/DAY, AT LUNCH
  16. SIMVASTATIN [Concomitant]
     Indication: BLOOD CHOLESTEROL INCREASED
     Dosage: UNK

REACTIONS (18)
  - ABDOMINAL PAIN UPPER [None]
  - ANXIETY [None]
  - DEPRESSION [None]
  - DIZZINESS [None]
  - DRY MOUTH [None]
  - DYSPEPSIA [None]
  - EMPHYSEMA [None]
  - ERYTHEMA [None]
  - FACIAL ASYMMETRY [None]
  - FATIGUE [None]
  - FEAR [None]
  - FEELING ABNORMAL [None]
  - HEADACHE [None]
  - NAUSEA [None]
  - PANIC DISORDER [None]
  - THROAT TIGHTNESS [None]
  - TRACHEAL OBSTRUCTION [None]
  - TREMOR [None]
